FAERS Safety Report 22538592 (Version 3)
Quarter: 2025Q3

REPORT INFORMATION
  Report Type: Spontaneous
  Country: MX (occurrence: MX)
  Receive Date: 20230609
  Receipt Date: 20250728
  Transmission Date: 20251021
  Serious: Yes (Hospitalization, Other)
  Sender: NOVO NORDISK
  Company Number: MX-NOVOPROD-1060119

PATIENT
  Age: 46 Year
  Sex: Male
  Weight: 76 kg

DRUGS (7)
  1. NOVOEIGHT [Suspect]
     Active Substance: ANTIHEMOPHILIC FACTOR, HUMAN RECOMBINANT
     Dosage: 2000 IU, QD (FOR 5 DAYS)
  2. NOVOEIGHT [Suspect]
     Active Substance: ANTIHEMOPHILIC FACTOR, HUMAN RECOMBINANT
     Indication: Haemophilia
     Dosage: 4000 IU, QD FOR 4 DAYS,
     Dates: start: 2013
  3. NOVOEIGHT [Suspect]
     Active Substance: ANTIHEMOPHILIC FACTOR, HUMAN RECOMBINANT
     Dosage: 3000 IU, QD (FOR 5 DAYS)
  4. LEVETIRACETAM [Concomitant]
     Active Substance: LEVETIRACETAM
     Indication: Epilepsy
     Dosage: 1.5 G, BID(DOSE: ONE TABLET (1 G) AND A HALF IN THE MORNING AND ONE TABLET (1G) AND A HALF IN THE EV
  5. VIGABATRIN [Concomitant]
     Active Substance: VIGABATRIN
     Indication: Epilepsy
     Dosage: 500 MG, BID(DOSE: 1 TABLET (500 MG) IN THE MORNING AND 1 TABLET IN THE EVENING)
  6. VALPROATE MAGNESIUM [Concomitant]
     Active Substance: VALPROATE MAGNESIUM
     Indication: Epilepsy
     Dosage: 600 MG, BID(DOSE: 1 TABLET (600 MG) IN THE MORNING AND 1 TABLET IN THE EVENING.)
  7. NOVOEIGHT [Suspect]
     Active Substance: ANTIHEMOPHILIC FACTOR, HUMAN RECOMBINANT
     Indication: Haemophilia
     Dates: start: 2013

REACTIONS (7)
  - Fall [Recovering/Resolving]
  - Joint injury [Recovering/Resolving]
  - Ligament sprain [Recovering/Resolving]
  - Head injury [Recovering/Resolving]
  - Fracture [Recovering/Resolving]
  - Hospitalisation [Recovered/Resolved]
  - Urinary tract infection [Recovering/Resolving]

NARRATIVE: CASE EVENT DATE: 20230502
